FAERS Safety Report 17334732 (Version 1)
Quarter: 2020Q1

REPORT INFORMATION
  Report Type: Report from Study
  Country: US (occurrence: US)
  Receive Date: 20200128
  Receipt Date: 20200128
  Transmission Date: 20200409
  Serious: Yes (Hospitalization)
  Sender: FDA-Public Use
  Company Number: US-JNJFOC-20200135749

PATIENT
  Sex: Male
  Weight: 75.36 kg

DRUGS (4)
  1. SPRAVATO [Suspect]
     Active Substance: ESKETAMINE
     Indication: DEPRESSION
  2. PRISTIQ EXTENDED-RELEASE [Concomitant]
     Active Substance: DESVENLAFAXINE SUCCINATE
     Indication: MAJOR DEPRESSION
  3. SPRAVATO [Suspect]
     Active Substance: ESKETAMINE
     Indication: MAJOR DEPRESSION
  4. GABAPENTIN. [Concomitant]
     Active Substance: GABAPENTIN
     Indication: GENERALISED ANXIETY DISORDER

REACTIONS (2)
  - Hallucination, visual [Recovering/Resolving]
  - Paranoia [Recovering/Resolving]

NARRATIVE: CASE EVENT DATE: 2019
